FAERS Safety Report 7573417-4 (Version None)
Quarter: 2011Q2

REPORT INFORMATION
  Report Type: 
  Country: None (occurrence: None)
  Receive Date: 20110627
  Receipt Date: 20110502
  Transmission Date: 20111010
  Serious: No
  Sender: FDA-Public Use
  Company Number: A0926439A

PATIENT
  Age: 40 Year
  Sex: Male

DRUGS (2)
  1. LAMICTAL XR [Suspect]
     Route: 048
     Dates: start: 20110331, end: 20110101
  2. DILANTIN [Concomitant]
     Dates: start: 20110101

REACTIONS (1)
  - DRUG INEFFECTIVE [None]
